FAERS Safety Report 8756920 (Version 1)
Quarter: 2012Q4

REPORT INFORMATION
  Report Type: 
  Country: US (occurrence: US)
  Receive Date: 20120831
  Receipt Date: 20120831
  Transmission Date: 20130627
  Serious: Yes (Other)
  Sender: FDA-Public Use
  Company Number: US-PFIZER INC-2012208809

PATIENT
  Age: 53 Year
  Sex: Female
  Weight: 84.35 kg

DRUGS (13)
  1. LYRICA [Suspect]
     Indication: PARAESTHESIA
     Dosage: 75 mg, one capsule in morning, 2 capsules in afternoon and 2 capsules at night
  2. LYRICA [Suspect]
     Indication: PAIN IN EXTREMITY
     Dosage: 225 mg, daily
  3. LYRICA [Suspect]
     Indication: FIBROMYALGIA
  4. CADUET [Suspect]
     Indication: BLOOD PRESSURE ABNORMAL
     Dosage: 5/40 mg,daily
  5. CADUET [Suspect]
     Indication: CARDIAC DISORDER
  6. PREDNISONE [Suspect]
     Indication: PULMONARY OEDEMA
     Dosage: 5 mg, daily
  7. ASPIRIN [Suspect]
     Indication: ANTICOAGULANT THERAPY
     Dosage: UNK,daily
  8. POTASSIUM [Suspect]
     Indication: SUPPLEMENTATION THERAPY
     Dosage: 10 mEq, daily
  9. NOVOLOG [Suspect]
     Indication: DIABETES MELLITUS
     Dosage: UNK,as needed
  10. SYMBICORT [Suspect]
     Indication: PULMONARY OEDEMA
     Dosage: 4.5 mg, 2x/day
  11. PROAIR HFA [Suspect]
     Indication: PULMONARY OEDEMA
     Dosage: UNK,2x/day
  12. ZEMPLAR [Suspect]
     Dosage: 4 ug, daily
  13. LASIX [Suspect]
     Indication: FLUID RETENTION
     Dosage: 20 mg, daily

REACTIONS (9)
  - Pulmonary oedema [Unknown]
  - Gait disturbance [Unknown]
  - Pulmonary fibrosis [Unknown]
  - Weight increased [Unknown]
  - Fluid retention [Unknown]
  - Drug ineffective [Unknown]
  - Pruritus [Unknown]
  - Muscle spasms [Unknown]
  - Feeling hot [Unknown]
